FAERS Safety Report 8733037 (Version 4)
Quarter: 2014Q2

REPORT INFORMATION
  Report Type: Report from Study
  Country: NL (occurrence: NL)
  Receive Date: 20120820
  Receipt Date: 20140414
  Transmission Date: 20141212
  Serious: Yes (Death)
  Sender: FDA-Public Use
  Company Number: NL-BAXTER-2012BAX014623

PATIENT
  Age: 45 Year
  Sex: Female

DRUGS (3)
  1. KIOVIG, 100 MG/ML, OPLOSSING VOOR INFUSIE  (30 G/300 ML) [Suspect]
     Indication: MYASTHENIA GRAVIS
     Route: 065
     Dates: start: 20091231
  2. KIOVIG, 100 MG/ML, OPLOSSING VOOR INFUSIE  (30 G/300 ML) [Suspect]
     Indication: OFF LABEL USE
     Dosage: 2 VIALS OF 10 GRAMS
     Route: 065
     Dates: start: 20120626, end: 20120626
  3. KIOVIG, 100 MG/ML, OPLOSSING VOOR INFUSIE  (30 G/300 ML) [Suspect]
     Dosage: 2 VIALS OF 20 GRAMS
     Dates: start: 20120626, end: 20120626

REACTIONS (1)
  - Myasthenia gravis [Fatal]
